FAERS Safety Report 5416684-5 (Version None)
Quarter: 2007Q3

REPORT INFORMATION
  Report Type: 
  Country: None (occurrence: None)
  Receive Date: 20070814
  Receipt Date: 20070731
  Transmission Date: 20080115
  Serious: Yes (Life-Threatening)
  Sender: FDA-Public Use
  Company Number: 02100-JPN-07-0309

PATIENT
  Age: 74 Year
  Sex: Male

DRUGS (3)
  1. CILOSTAZOL [Suspect]
     Indication: SHUNT OCCLUSION
     Dosage: 100 MG
     Route: 048
     Dates: start: 20070301, end: 20070612
  2. SEVELAMER HYDROCHLORIDE [Concomitant]
  3. PRECIPITATED CALCIUM CARBONATE [Concomitant]

REACTIONS (6)
  - BLOOD PHOSPHORUS INCREASED [None]
  - IDIOPATHIC THROMBOCYTOPENIC PURPURA [None]
  - LUNG NEOPLASM MALIGNANT [None]
  - MALIGNANT NEOPLASM PROGRESSION [None]
  - PARANEOPLASTIC SYNDROME [None]
  - PLEURAL EFFUSION [None]
